FAERS Safety Report 13424526 (Version 1)
Quarter: 2017Q2

REPORT INFORMATION
  Report Type: Spontaneous
  Country: US (occurrence: US)
  Receive Date: 20170410
  Receipt Date: 20170410
  Transmission Date: 20170830
  Serious: Yes (Death)
  Sender: FDA-Public Use
  Company Number: US-BAYER-2017-061320

PATIENT
  Age: 87 Year
  Sex: Male

DRUGS (3)
  1. IMMUNE GLOBULIN NOS [Concomitant]
     Active Substance: IMMUNE GLOBULIN NOS
  2. ANTIHEMOPHILIC FACTOR (RECOMBINANT), SUCROSE FORMULATED FS [Suspect]
     Active Substance: ANTIHEMOPHILIC FACTOR, HUMAN RECOMBINANT
     Indication: ACQUIRED HAEMOPHILIA
  3. CLOPIDOGREL [Concomitant]
     Active Substance: CLOPIDOGREL BISULFATE
     Indication: ANTIPLATELET THERAPY

REACTIONS (2)
  - Ischaemic stroke [Fatal]
  - Embolism venous [Fatal]
